FAERS Safety Report 24233967 (Version 1)
Quarter: 2024Q3

REPORT INFORMATION
  Report Type: Spontaneous
  Country: US (occurrence: None)
  Receive Date: 20240821
  Receipt Date: 20240821
  Transmission Date: 20241017
  Serious: Yes (Other)
  Sender: Public
  Company Number: None

PATIENT
  Sex: Female

DRUGS (11)
  1. PROLIA [Suspect]
     Active Substance: DENOSUMAB
     Indication: Senile osteoporosis
     Dates: start: 20170411
  2. ANASTROZOLE [Concomitant]
  3. ASPIRIN [Concomitant]
  4. METHYLCOBALAMIN [Concomitant]
     Active Substance: METHYLCOBALAMIN
  5. CALCIUM [Concomitant]
  6. EXETIMIBE [Concomitant]
  7. FLAXSEED OIL CAP [Concomitant]
  8. GEMFIBROZIL [Concomitant]
  9. LANSOPRAZOLE CAP [Concomitant]
  10. PRESERVISION CAP AREDS 2 [Concomitant]
  11. PROLIA [Concomitant]

REACTIONS (2)
  - Cholelithotomy [None]
  - Cholecystectomy [None]
